FAERS Safety Report 18987237 (Version 1)
Quarter: 2021Q1

REPORT INFORMATION
  Report Type: Spontaneous
  Country: US (occurrence: US)
  Receive Date: 20210309
  Receipt Date: 20210309
  Transmission Date: 20210420
  Serious: Yes (Other)
  Sender: FDA-Public Use
  Company Number: None

PATIENT
  Age: 57 Year
  Sex: Female
  Weight: 110 kg

DRUGS (1)
  1. CASIRIVIMAB/IMDEVIMAB [Suspect]
     Active Substance: CASIRIVIMAB\IMDEVIMAB
     Indication: COVID-19
     Dosage: ?          OTHER FREQUENCY:ONCE;?
     Route: 042

REACTIONS (9)
  - Blood pressure increased [None]
  - Feeling abnormal [None]
  - Throat irritation [None]
  - Throat tightness [None]
  - Infusion related reaction [None]
  - Headache [None]
  - Dizziness [None]
  - Chest discomfort [None]
  - Wheezing [None]

NARRATIVE: CASE EVENT DATE: 20210309
